FAERS Safety Report 25884141 (Version 1)
Quarter: 2025Q4

REPORT INFORMATION
  Report Type: Spontaneous
  Country: CH (occurrence: CH)
  Receive Date: 20251006
  Receipt Date: 20251006
  Transmission Date: 20260117
  Serious: Yes (Other)
  Sender: PFIZER
  Company Number: CH-MLMSERVICE-20250922-PI655179-00218-1

PATIENT
  Age: 13 Year
  Sex: Female

DRUGS (25)
  1. METHOTREXATE SODIUM [Suspect]
     Active Substance: METHOTREXATE SODIUM
     Indication: Diffuse large B-cell lymphoma
     Dosage: DAY 1 R-COP REGIMEN
     Route: 037
  2. METHOTREXATE SODIUM [Suspect]
     Active Substance: METHOTREXATE SODIUM
     Indication: Renal neoplasm
     Dosage: DAY 1, R-COPADM COURSES 1 + 2
     Route: 037
  3. METHOTREXATE SODIUM [Suspect]
     Active Substance: METHOTREXATE SODIUM
     Dosage: DAY 2, R-COPADM /R-CYM COURSES 1 + 2  DAY 1
     Route: 037
  4. METHOTREXATE SODIUM [Suspect]
     Active Substance: METHOTREXATE SODIUM
     Dosage: 50% DOSE REDUCTION (3000 MG/M2 DAY 1), ADMINISTERED 12 HOURS BEFORE DIALYSIS
     Route: 037
  5. METHOTREXATE SODIUM [Suspect]
     Active Substance: METHOTREXATE SODIUM
     Dosage: 50% DOSE REDUCTION (3000 MG/M2 DAY 1), ADMINISTERED 12 HOURS BEFORE DIALYSIS
     Route: 037
  6. PREDNISONE [Concomitant]
     Active Substance: PREDNISONE
     Indication: Diffuse large B-cell lymphoma
     Dosage: 60 MG/M2 DAY 1-7
  7. PREDNISONE [Concomitant]
     Active Substance: PREDNISONE
     Indication: Renal neoplasm
     Dosage: FULL DOSE (60 MG/M2 DAY 1-5)
  8. RITUXIMAB [Concomitant]
     Active Substance: RITUXIMAB
     Indication: Diffuse large B-cell lymphoma
     Dosage: FULL DOSE DAY 6 (= DAY-2 1STCOPADM))
  9. RITUXIMAB [Concomitant]
     Active Substance: RITUXIMAB
     Indication: Renal neoplasm
     Dosage: 375 MG/M2 DAY-2 AND DAY 1 FULL DOSE; R-COPADM COURSES 1 + 2
  10. RITUXIMAB [Concomitant]
     Active Substance: RITUXIMAB
     Dosage: 375 MG/M2 DAY-2 AND DAY 1 FULL DOSE; R-CYM COURSES 1 + 2
  11. CYCLOPHOSPHAMIDE [Concomitant]
     Active Substance: CYCLOPHOSPHAMIDE
     Indication: Diffuse large B-cell lymphoma
     Dosage: FULL DOSE (300 MG/M2 DAY 1) ADMINISTERED AT LEAST 12 HOURS BEFORE DIALYSIS; R-COP REGIMEN
  12. CYCLOPHOSPHAMIDE [Concomitant]
     Active Substance: CYCLOPHOSPHAMIDE
     Indication: Renal neoplasm
     Dosage: 250 MG/M2, 2X/DAY (ADMINISTERED 12 HOURS BEFORE DIALYSIS; R-COPADM COURSES 1 + 2)
  13. VINCRISTINE [Concomitant]
     Active Substance: VINCRISTINE
     Indication: Diffuse large B-cell lymphoma
     Dosage: 1 MG/M2, 1X/DAY (FULL DOSE: R-COP REGIMEN)
  14. VINCRISTINE [Concomitant]
     Active Substance: VINCRISTINE
     Indication: Renal neoplasm
     Dosage: FULL DOSE (2.0 MG/M2, DAY 1)
  15. METHYLPREDNISOLONE [Concomitant]
     Active Substance: METHYLPREDNISOLONE
     Indication: Diffuse large B-cell lymphoma
     Dosage: DAY 1; R-COP REGIMEN
  16. METHYLPREDNISOLONE [Concomitant]
     Active Substance: METHYLPREDNISOLONE
     Indication: Renal neoplasm
     Dosage: 3 MG DAY 1 AND DAY 6; R-COPADM COURSES 1 + 2
  17. METHYLPREDNISOLONE [Concomitant]
     Active Substance: METHYLPREDNISOLONE
     Dosage: FULL DOSE 3 MG DAY 7; R-CYM COURSES 1 + 2
  18. DOXORUBICIN [Concomitant]
     Active Substance: DOXORUBICIN
     Indication: Diffuse large B-cell lymphoma
     Dosage: 60 MG/M2, 1X/DAY (DAY 2; R-COPADM COURSES 1 + 2)
  19. DOXORUBICIN [Concomitant]
     Active Substance: DOXORUBICIN
     Indication: Renal neoplasm
  20. CALCITRIOL [Concomitant]
     Active Substance: CALCITRIOL
     Indication: Renal failure
     Dosage: UNK
  21. ERYTHROPOIETIN [Concomitant]
     Active Substance: ERYTHROPOIETIN
     Indication: Renal failure
     Dosage: UNK
  22. CYTARABINE [Concomitant]
     Active Substance: CYTARABINE
     Indication: Diffuse large B-cell lymphoma
     Dosage: 100 MG/M2 FULL DOSE (CONTINUOUS INFUSION OVER 24 HOURS ON DAYS 2-6)
  23. CYTARABINE [Concomitant]
     Active Substance: CYTARABINE
     Indication: Renal neoplasm
     Dosage: FULL DOSE (30 MG DAY 7)
     Route: 037
  24. LEUCOVORIN [Concomitant]
     Active Substance: LEUCOVORIN\LEUCOVORIN CALCIUM
     Indication: Diffuse large B-cell lymphoma
     Dosage: 15 MG/M2, 4X/DAY (FROM H24 TO PLASMA CONCENTRATION OF MTX)
  25. LEUCOVORIN [Concomitant]
     Active Substance: LEUCOVORIN\LEUCOVORIN CALCIUM
     Indication: Renal neoplasm

REACTIONS (3)
  - Myelosuppression [Unknown]
  - Mucosal inflammation [Unknown]
  - Mucosal haemorrhage [Unknown]
